FAERS Safety Report 10596221 (Version 4)
Quarter: 2015Q1

REPORT INFORMATION
  Report Type: Report from Study
  Country: CZ (occurrence: CZ)
  Receive Date: 20141120
  Receipt Date: 20150311
  Transmission Date: 20150720
  Serious: Yes (Other)
  Sender: FDA-Public Use
  Company Number: CZ-GLAXOSMITHKLINE-CZ2014GSK024121

PATIENT
  Age: 50 Year
  Sex: Male
  Weight: 100 kg

DRUGS (6)
  1. FUCIDIN [Concomitant]
     Active Substance: FUSIDIC ACID
     Dosage: UNK
     Dates: start: 20150115
  2. PEVARYL [Concomitant]
     Active Substance: ECONAZOLE NITRATE
     Dosage: UNK
     Dates: start: 20150309
  3. ELOCOM [Concomitant]
     Active Substance: MOMETASONE FUROATE
     Dosage: UNK
     Dates: start: 20150309
  4. DABRAFENIB [Suspect]
     Active Substance: DABRAFENIB
     Indication: METASTATIC MALIGNANT MELANOMA
     Dosage: 150 MG, BID
     Route: 048
     Dates: start: 20140703
  5. PARALEN [Concomitant]
     Active Substance: ACETAMINOPHEN
     Dosage: 500 MG, PRN
  6. TRAMETINIB [Suspect]
     Active Substance: TRAMETINIB
     Indication: METASTATIC MALIGNANT MELANOMA
     Dosage: 2 MG, QD
     Route: 048
     Dates: start: 20140703

REACTIONS (8)
  - Thrombocytopenia [Recovered/Resolved]
  - Seborrhoeic dermatitis [Not Recovered/Not Resolved]
  - Leukopenia [Recovered/Resolved]
  - Neutropenia [Recovered/Resolved]
  - Pyrexia [Recovered/Resolved]
  - Chills [Recovered/Resolved]
  - Chills [Recovered/Resolved]
  - Chills [Recovered/Resolved]

NARRATIVE: CASE EVENT DATE: 20141028
